FAERS Safety Report 18162179 (Version 1)
Quarter: 2020Q3

REPORT INFORMATION
  Report Type: Report from Study
  Country: IT (occurrence: IT)
  Receive Date: 20200818
  Receipt Date: 20200818
  Transmission Date: 20201103
  Serious: Yes (Hospitalization)
  Sender: FDA-Public Use
  Company Number: IT-TEVA-2020-IT-1814548

PATIENT
  Age: 75 Year
  Sex: Female

DRUGS (7)
  1. INSULIN GLARGINE [Interacting]
     Active Substance: INSULIN GLARGINE
     Indication: TYPE 2 DIABETES MELLITUS
     Dosage: 1 DOSAGE FORM
     Route: 058
     Dates: start: 20180820
  2. GIANT 40 MG/10 MG COMPRESSE RIVESTITE CON FILM [Concomitant]
     Active Substance: AMLODIPINE BESYLATE\OLMESARTAN MEDOXOMIL
     Dosage: 1 DOSAGE FORM
     Route: 048
  3. REPAGLINIDE. [Suspect]
     Active Substance: REPAGLINIDE
     Indication: TYPE 2 DIABETES MELLITUS
     Dosage: 6 MG
     Route: 048
     Dates: start: 20160101
  4. REXTAT 40 MG COMPRESSE [Concomitant]
     Dosage: 40 MG
     Route: 048
  5. CARDIRENE 160 MG POLVERE PER SOLUZIONE ORALE [Concomitant]
     Active Substance: ASPIRIN DL-LYSINE
     Dosage: 1 DOSAGE FORM
     Route: 048
  6. DEDIOL 2 MCG/ML GOCCE ORALI, SOLUZIONE [Concomitant]
     Dosage: 10 GTT
     Route: 048
  7. PLAVIX [Concomitant]
     Active Substance: CLOPIDOGREL BISULFATE
     Dosage: 75 MG
     Route: 048

REACTIONS (5)
  - Bradyphrenia [Recovering/Resolving]
  - Hypoglycaemia [Recovering/Resolving]
  - Drug interaction [Recovering/Resolving]
  - Asthenia [Recovering/Resolving]
  - Hypokinesia [Recovering/Resolving]

NARRATIVE: CASE EVENT DATE: 20200622
